FAERS Safety Report 24166091 (Version 2)
Quarter: 2024Q3

REPORT INFORMATION
  Report Type: Spontaneous
  Country: US (occurrence: US)
  Receive Date: 20240802
  Receipt Date: 20240924
  Transmission Date: 20241017
  Serious: No
  Sender: TEVA
  Company Number: US-TEVA-VS-3224568

PATIENT
  Age: 57 Year
  Sex: Male

DRUGS (1)
  1. BUPRENORPHINE [Suspect]
     Active Substance: BUPRENORPHINE
     Indication: Fibromyalgia
     Dosage: 20 MCG / HR
     Route: 062

REACTIONS (5)
  - Pruritus [Unknown]
  - Product adhesion issue [Unknown]
  - Product dose omission issue [Unknown]
  - Pain [Unknown]
  - Poor quality sleep [Unknown]
